FAERS Safety Report 6900754-6 (Version None)
Quarter: 2010Q3

REPORT INFORMATION
  Report Type: 
  Country: None (occurrence: None)
  Receive Date: 20100803
  Receipt Date: 20100728
  Transmission Date: 20110219
  Serious: Yes (Hospitalization)
  Sender: FDA-Public Use
  Company Number: FR-BRISTOL-MYERS SQUIBB COMPANY-15218449

PATIENT
  Age: 72 Year
  Sex: Male

DRUGS (11)
  1. SKENAN LP CAPS 60 MG [Suspect]
     Dosage: 1DF:1CAPSULE
     Route: 048
     Dates: start: 20100525, end: 20100530
  2. EFFERALGAN CODEINE [Suspect]
     Dosage: 1DF:4TABS
     Route: 048
     Dates: start: 20100101, end: 20100530
  3. HYDREA [Suspect]
  4. KARDEGIC [Concomitant]
  5. PLAVIX [Concomitant]
  6. LASIX [Concomitant]
  7. XATRAL [Concomitant]
  8. LYRICA [Concomitant]
     Dosage: 1DF:150(UNIT NOT SPECIFIED)
  9. SERESTA [Concomitant]
  10. BISOPROLOL [Concomitant]
  11. CLONAZEPAM [Concomitant]
     Dosage: 3 DROPS IN THE EVENING

REACTIONS (4)
  - COMA [None]
  - LUNG INFECTION [None]
  - RENAL FAILURE ACUTE [None]
  - URINARY TRACT INFECTION [None]
